FAERS Safety Report 5153448-4 (Version None)
Quarter: 2006Q4

REPORT INFORMATION
  Report Type: 
  Country: None (occurrence: None)
  Receive Date: 20061117
  Receipt Date: 20061030
  Transmission Date: 20070319
  Serious: Yes (Hospitalization)
  Sender: FDA-Public Use
  Company Number: FR-ABBOTT-06P-056-0348641-00

PATIENT
  Age: 40 Year
  Sex: Male

DRUGS (11)
  1. KALETRA [Suspect]
     Indication: HIV INFECTION
     Route: 048
     Dates: start: 20011117, end: 20030617
  2. BACTRIM [Suspect]
     Indication: DRUG USE FOR UNKNOWN INDICATION
     Route: 048
     Dates: start: 19961015
  3. STAVUDINE [Suspect]
     Indication: HIV INFECTION
     Route: 048
     Dates: start: 19980804, end: 20030617
  4. DIDANOSINE [Suspect]
     Indication: HIV INFECTION
     Route: 048
     Dates: start: 19980804, end: 20030619
  5. ALDESLEUKINE [Suspect]
     Indication: DRUG USE FOR UNKNOWN INDICATION
     Route: 042
     Dates: start: 20001016, end: 20021029
  6. ABACAVIR [Suspect]
     Indication: HIV INFECTION
     Route: 048
     Dates: start: 20030617
  7. LAMIVUDINE [Suspect]
     Indication: HIV INFECTION
     Route: 048
     Dates: start: 20030617
  8. ZIDOVUDINE [Suspect]
     Indication: HIV INFECTION
     Route: 048
     Dates: start: 20030617
  9. CLARITHROMYCIN [Concomitant]
     Indication: HELICOBACTER INFECTION
  10. AMOXICILLIN [Concomitant]
     Indication: HELICOBACTER INFECTION
  11. PANTOPRAZOLE SODIUM [Concomitant]
     Indication: HELICOBACTER INFECTION

REACTIONS (1)
  - NON-HODGKIN'S LYMPHOMA [None]
